FAERS Safety Report 20700406 (Version 1)
Quarter: 2022Q2

REPORT INFORMATION
  Report Type: Spontaneous
  Country: US (occurrence: None)
  Receive Date: 20220410
  Receipt Date: 20220410
  Transmission Date: 20220721
  Serious: Yes (Disabling)
  Sender: FDA-Public Use
  Company Number: None

PATIENT
  Age: 69 Year
  Sex: Female
  Weight: 49.05 kg

DRUGS (4)
  1. FIRDAPSE [Suspect]
     Active Substance: AMIFAMPRIDINE PHOSPHATE
     Indication: Myasthenic syndrome
     Dates: start: 20220301
  2. PREDISONE BPAP [Concomitant]
  3. VIT B [Concomitant]
  4. VITAMIN D NOS [Concomitant]
     Active Substance: VITAMIN D NOS

REACTIONS (8)
  - Therapeutic product effect incomplete [None]
  - Muscular weakness [None]
  - Muscular weakness [None]
  - Dyspnoea [None]
  - Dysphagia [None]
  - Product substitution issue [None]
  - Plasmapheresis [None]
  - Quality of life decreased [None]

NARRATIVE: CASE EVENT DATE: 20220301
